FAERS Safety Report 4680781-2 (Version None)
Quarter: 2005Q2

REPORT INFORMATION
  Report Type: 
  Country: None (occurrence: None)
  Receive Date: 20050601
  Receipt Date: 20050524
  Transmission Date: 20051028
  Serious: Yes (Death, Hospitalization)
  Sender: FDA-Public Use
  Company Number: 2005079474

PATIENT
  Age: 75 Year
  Sex: Female
  Weight: 57 kg

DRUGS (6)
  1. AMLODIPINE [Suspect]
     Indication: ILL-DEFINED DISORDER
     Dosage: 5 MG (5 MG, DAILY), ORAL
     Route: 048
  2. ACETYLSALICYLATE LYSINE (ACETYLSALICYLATE LYSINE) [Suspect]
     Indication: ILL-DEFINED DISORDER
     Dosage: 75 MG (DAILY), ORAL
     Route: 048
     Dates: start: 20050323
  3. ENALAPRIL MALEATE [Suspect]
     Indication: ILL-DEFINED DISORDER
     Dosage: 20 MG (DAILY), ORAL
     Route: 048
  4. AMIODARONE HCL [Suspect]
     Indication: ILL-DEFINED DISORDER
     Dosage: 200 MG (DAILY), ORAL
     Route: 048
  5. CLOPIDOGREL BISULFATE [Suspect]
     Indication: ILL-DEFINED DISORDER
     Dosage: ORAL
     Route: 048
     Dates: start: 20050322
  6. ILOPROST (ILOPROST) [Suspect]
     Indication: ILL-DEFINED DISORDER
     Dosage: 50 MCG, INTRAVENOUS
     Route: 042
     Dates: start: 20050305, end: 20050328

REACTIONS (1)
  - ACUTE RESPIRATORY DISTRESS SYNDROME [None]
